FAERS Safety Report 9889102 (Version 1)
Quarter: 2014Q1

REPORT INFORMATION
  Report Type: Spontaneous
  Country: US (occurrence: None)
  Receive Date: 20140210
  Receipt Date: 20140210
  Transmission Date: 20141002
  Serious: Yes (Other)
  Sender: FDA-Public Use
  Company Number: None

PATIENT
  Age: 83 Year
  Sex: Female
  Weight: 56.25 kg

DRUGS (1)
  1. COMBIVENT RESPIMAT [Suspect]

REACTIONS (5)
  - Tachycardia [None]
  - Arrhythmia [None]
  - Device breakage [None]
  - Device ineffective [None]
  - Incorrect dose administered by device [None]
